FAERS Safety Report 19751584 (Version 2)
Quarter: 2021Q4

REPORT INFORMATION
  Report Type: Report from Study
  Country: US (occurrence: US)
  Receive Date: 20210827
  Receipt Date: 20211013
  Transmission Date: 20220303
  Serious: Yes (Congenital Anomaly)
  Sender: FDA-Public Use
  Company Number: US-UCBSA-2021039997

PATIENT
  Age: 1 Year
  Sex: Female

DRUGS (23)
  1. CERTOLIZUMAB PEGOL [Suspect]
     Active Substance: CERTOLIZUMAB PEGOL
     Indication: Ankylosing spondylitis
     Dosage: 400 MILLIGRAM, EV 2 WEEKS(QOW)
     Route: 064
     Dates: start: 20190718, end: 20190815
  2. CERTOLIZUMAB PEGOL [Suspect]
     Active Substance: CERTOLIZUMAB PEGOL
     Dosage: 200 MILLIGRAM, EV 2 WEEKS(QOW)
     Route: 064
     Dates: start: 20190829, end: 20200211
  3. BENADRYL [Concomitant]
     Active Substance: DIPHENHYDRAMINE HYDROCHLORIDE
     Indication: Product used for unknown indication
     Dosage: 25 MILLIGRAM, 2X/DAY (BID)
     Route: 064
     Dates: start: 20190705, end: 20190922
  4. CEFDINIR [Concomitant]
     Active Substance: CEFDINIR
     Indication: Sinusitis
     Dosage: 300 MILLIGRAM, 2X/DAY (BID)
     Route: 064
     Dates: start: 20191216, end: 20191221
  5. CLARITHROMYCIN [Concomitant]
     Active Substance: CLARITHROMYCIN
     Indication: Urticaria
     Dosage: 1PILL X DAY
     Route: 064
     Dates: start: 20190801, end: 20190801
  6. COENZYME Q10 [Concomitant]
     Active Substance: DIETARY SUPPLEMENT\UBIDECARENONE
     Indication: Product used for unknown indication
     Dosage: 100 MILLIGRAM, ONCE DAILY (QD)
     Route: 064
     Dates: start: 20190705, end: 20191201
  7. DIETARY SUPPLEMENT [Concomitant]
     Active Substance: DIETARY SUPPLEMENT
     Indication: Pregnancy
     Dosage: UNK
     Route: 064
     Dates: start: 20191201, end: 20200215
  8. INFLUENZA VIRUS VACCINE [Concomitant]
     Active Substance: INFLUENZA VIRUS VACCINE
     Indication: Immunisation
     Dosage: 1SHOT X 1 DAY
     Dates: start: 20190918, end: 20190918
  9. IRON [Concomitant]
     Active Substance: IRON
     Indication: Anaemia
     Dosage: 65 MILLIGRAM, ONCE DAILY (QD)
     Route: 064
     Dates: start: 20200111, end: 20200312
  10. IRON CITRATE [Concomitant]
     Indication: Supplementation therapy
     Dosage: 1 PILL X DAY
     Route: 064
     Dates: start: 20191018, end: 20200110
  11. LOTRIMIN ULTRA [Concomitant]
     Active Substance: BUTENAFINE HYDROCHLORIDE
     Indication: Product used for unknown indication
     Dosage: KNEE, FACE,SCALP AND/OR SKIN
     Route: 064
     Dates: start: 20190924, end: 20191008
  12. MAGNESIUM [Concomitant]
     Active Substance: MAGNESIUM
     Indication: Headache
     Dosage: 400 MILLIGRAM, ONCE DAILY (QD)
     Route: 064
     Dates: start: 20191104, end: 20191201
  13. PEPCID [Concomitant]
     Active Substance: FAMOTIDINE
     Indication: Antiallergic therapy
     Dosage: 20 MILLIGRAM, ONCE DAILY (QD)
     Route: 064
     Dates: start: 20190916, end: 20190916
  14. PERCOCET [Concomitant]
     Active Substance: ACETAMINOPHEN\OXYCODONE HYDROCHLORIDE
     Indication: Back pain
     Dosage: 1PILL X 2DAY
     Route: 064
     Dates: start: 20190708, end: 20190712
  15. MINERALS\VITAMINS [Concomitant]
     Active Substance: MINERALS\VITAMINS
     Indication: Supplementation therapy
     Dosage: 2PILL X DAY
     Route: 064
     Dates: start: 20190708, end: 20200312
  16. MENTHOL [Concomitant]
     Active Substance: MENTHOL
     Indication: Nasopharyngitis
     Dosage: 1SERVING A DAY
     Route: 064
     Dates: start: 20191218, end: 20191221
  17. XYLOMETAZOLINE HYDROCHLORIDE [Concomitant]
     Active Substance: XYLOMETAZOLINE HYDROCHLORIDE
     Indication: Nasopharyngitis
     Dosage: 120 MILLIGRAM, ONCE DAILY (QD)
     Route: 064
     Dates: start: 20191216, end: 20191217
  18. XYLOMETAZOLINE HYDROCHLORIDE [Concomitant]
     Active Substance: XYLOMETAZOLINE HYDROCHLORIDE
     Dosage: 60 MILLIGRAM, ONCE DAILY (QD)
     Route: 064
     Dates: start: 20191218, end: 20191218
  19. TETANUS TOXOID, REDUCED DIPHTHERIA TOXOID AND ACELLULAR PERTUSSIS VACC [Concomitant]
     Active Substance: TETANUS TOXOID, REDUCED DIPHTHERIA TOXOID AND ACELLULAR PERTUSSIS VACCINE ADSORBED, TDAP
     Indication: Immunisation
     Dosage: 1 SHOT A DAY
     Route: 064
     Dates: start: 20200205, end: 20200205
  20. SULFAMETHOXAZOLE\TRIMETHOPRIM [Concomitant]
     Active Substance: SULFAMETHOXAZOLE\TRIMETHOPRIM
     Indication: Fungal skin infection
     Dosage: UNK
     Route: 064
     Dates: start: 20190923, end: 20190930
  21. TYLENOL [Concomitant]
     Active Substance: ACETAMINOPHEN
     Indication: Pyrexia
     Dosage: 500 MILLIGRAM X4
     Route: 064
     Dates: start: 20191215, end: 20191219
  22. ZYRTEC [Concomitant]
     Active Substance: CETIRIZINE HYDROCHLORIDE
     Indication: Product used for unknown indication
     Dosage: 1 PILL X DAY
     Route: 064
     Dates: start: 20190916, end: 20190922
  23. ALCOHOL [Concomitant]
     Active Substance: ALCOHOL
     Indication: Product used for unknown indication

REACTIONS (3)
  - Developmental hip dysplasia [Unknown]
  - Jaundice neonatal [Unknown]
  - Maternal exposure during pregnancy [Unknown]

NARRATIVE: CASE EVENT DATE: 20190718
